FAERS Safety Report 4394615-7 (Version None)
Quarter: 2004Q3

REPORT INFORMATION
  Report Type: 
  Country: None (occurrence: None)
  Receive Date: 20040712
  Receipt Date: 20040630
  Transmission Date: 20050211
  Serious: Yes (Hospitalization)
  Sender: FDA-Public Use
  Company Number: US-ROCHE-372757

PATIENT
  Age: 61 Year
  Sex: Female

DRUGS (2)
  1. ROCEPHIN [Suspect]
     Route: 065
     Dates: start: 20040215
  2. ELMIRON [Suspect]
     Indication: BLADDER PAIN
     Route: 048
     Dates: start: 20040115, end: 20040215

REACTIONS (6)
  - ARTHRALGIA [None]
  - BURNING SENSATION [None]
  - DEPRESSION [None]
  - MUSCULOSKELETAL STIFFNESS [None]
  - RASH ERYTHEMATOUS [None]
  - RASH GENERALISED [None]
